FAERS Safety Report 13021664 (Version 2)
Quarter: 2017Q1

REPORT INFORMATION
  Report Type: Spontaneous
  Country: ES (occurrence: ES)
  Receive Date: 20161213
  Receipt Date: 20170112
  Transmission Date: 20170428
  Serious: Yes (Death, Other)
  Sender: FDA-Public Use
  Company Number: ES-SUN PHARMACEUTICAL INDUSTRIES LTD-2016RR-129378

PATIENT
  Age: 60 Year
  Sex: Male

DRUGS (9)
  1. 5-FLUOROURACIL [Suspect]
     Active Substance: FLUOROURACIL
     Dosage: 2400 MG/M2, ON DAY 1, 14 DAY CYCLE, 5 CYCLES
     Route: 042
  2. AFLIBERCEPT [Suspect]
     Active Substance: AFLIBERCEPT
     Indication: COLORECTAL CANCER METASTATIC
     Dosage: 4 MG/KG, ON DAY 1, 14 DAY CYCLE
     Route: 065
  3. OXALIPLATIN. [Suspect]
     Active Substance: OXALIPLATIN
     Indication: COLORECTAL CANCER METASTATIC
     Dosage: 85 MG/M2, ON DAY 1, 14 DAY CYCLE, 12 CYCLES
     Route: 065
     Dates: start: 201212, end: 201306
  4. 5-FLUOROURACIL [Suspect]
     Active Substance: FLUOROURACIL
     Indication: COLORECTAL CANCER METASTATIC
     Dosage: 400 MG/M2, ON DAY 1, 14 DAY CYCLE, 12 CYCLES
     Route: 040
     Dates: start: 201212, end: 201306
  5. CALCIUM FOLINAT [Suspect]
     Active Substance: LEUCOVORIN CALCIUM
     Indication: COLORECTAL CANCER METASTATIC
     Dosage: 200 MG/M2, ON DAY 1, 14 DAY CYCLE, 12 CYCLES
     Route: 065
     Dates: start: 201212, end: 201306
  6. 5-FLUOROURACIL [Suspect]
     Active Substance: FLUOROURACIL
     Dosage: 2400 MG/M2, ON DAY 1, 14 DAY CYCLE, 12 CYCLES
     Route: 042
     Dates: start: 201212, end: 201306
  7. BEVACIZUMAB [Suspect]
     Active Substance: BEVACIZUMAB
     Indication: COLORECTAL CANCER METASTATIC
     Dosage: 5 MG/KG, ON DAY 1, 14 DAY CYCLE, 12 CYCLES
     Route: 065
     Dates: start: 201212, end: 201306
  8. 5-FLUOROURACIL [Suspect]
     Active Substance: FLUOROURACIL
     Indication: COLORECTAL CANCER METASTATIC
     Dosage: 400 MG/M2, ON DAY 1, 14 DAY CYCLE, 5 CYCLES
     Route: 040
  9. IRINOTECAN [Suspect]
     Active Substance: IRINOTECAN
     Indication: COLORECTAL CANCER METASTATIC
     Dosage: 180 MG/M2, ON DAY 1, 14 DAY CYCLE, 8 CYCLES
     Route: 065
     Dates: end: 201311

REACTIONS (7)
  - Nausea [Unknown]
  - Diarrhoea [Unknown]
  - Fatigue [Unknown]
  - Toxicity to various agents [Unknown]
  - Hypertension [Unknown]
  - Disease progression [Fatal]
  - Decreased appetite [Unknown]

NARRATIVE: CASE EVENT DATE: 201312
